FAERS Safety Report 20495450 (Version 1)
Quarter: 2022Q1

REPORT INFORMATION
  Report Type: Spontaneous
  Country: GB (occurrence: GB)
  Receive Date: 20220221
  Receipt Date: 20220221
  Transmission Date: 20220423
  Serious: Yes (Other)
  Sender: FDA-Public Use
  Company Number: None

PATIENT
  Age: 44 Year

DRUGS (7)
  1. BISOPROLOL [Suspect]
     Active Substance: BISOPROLOL
     Indication: Hypertension
     Dosage: WAS ON 10MG TO 5 MG NOW FOR THE LAST 5 DAYS
  2. RAMIPRIL [Suspect]
     Active Substance: RAMIPRIL
     Indication: Hypertension
     Dosage: MORNING
  3. AMLODIPINE [Suspect]
     Active Substance: AMLODIPINE BESYLATE
     Indication: Product used for unknown indication
     Dosage: UNK
  4. OMEPRAZOLE [Concomitant]
     Active Substance: OMEPRAZOLE
     Dosage: 20 MILLIGRAM
  5. OLANZAPINE [Concomitant]
     Active Substance: OLANZAPINE
     Dosage: UNK
  6. AMITRIPTYLINE [Concomitant]
     Active Substance: AMITRIPTYLINE
     Dosage: 30 MILLIGRAM
  7. FLUOXETINE [Concomitant]
     Active Substance: FLUOXETINE HYDROCHLORIDE
     Dosage: 20 MILLIGRAM

REACTIONS (20)
  - Syncope [Unknown]
  - Bradycardia [Unknown]
  - Dyspnoea [Unknown]
  - Trismus [Recovered/Resolved]
  - Muscle twitching [Unknown]
  - Drug ineffective [Unknown]
  - Peripheral coldness [Unknown]
  - Chest pain [Unknown]
  - Blood pressure decreased [Recovered/Resolved]
  - Speech disorder [Unknown]
  - Haemoptysis [Recovering/Resolving]
  - Tachycardia [Unknown]
  - Axillary pain [Recovered/Resolved]
  - Confusional state [Unknown]
  - Vomiting [Unknown]
  - Nausea [Unknown]
  - Chest discomfort [Unknown]
  - Depression [Unknown]
  - Anxiety [Unknown]
  - Feeling cold [Unknown]
